FAERS Safety Report 6394318-3 (Version None)
Quarter: 2009Q4

REPORT INFORMATION
  Report Type: 
  Country: None (occurrence: None)
  Receive Date: 20091006
  Receipt Date: 20090923
  Transmission Date: 20100525
  Serious: Yes (Hospitalization)
  Sender: FDA-Public Use
  Company Number: GXKR2009GB10585

PATIENT
  Sex: Female

DRUGS (2)
  1. QUETIAPINE FUMARATE [Suspect]
     Dosage: 4.6 G,
  2. ACETAMINOPHEN [Suspect]
     Dosage: 12 G,

REACTIONS (6)
  - COMA SCALE ABNORMAL [None]
  - ENDOTRACHEAL INTUBATION [None]
  - HYPOTENSION [None]
  - MECHANICAL VENTILATION [None]
  - OVERDOSE [None]
  - SINUS TACHYCARDIA [None]
